FAERS Safety Report 7607402-0 (Version None)
Quarter: 2011Q3

REPORT INFORMATION
  Report Type: 
  Country: None (occurrence: None)
  Receive Date: 20110713
  Receipt Date: 20110629
  Transmission Date: 20111222
  Serious: Yes (Other)
  Sender: FDA-Public Use
  Company Number: US-TYCO HEALTHCARE/MALLINCKRODT-T201101354

PATIENT
  Age: 37 Year
  Sex: Male

DRUGS (6)
  1. METHADOSE [Suspect]
     Dosage: 80 MG, QD
  2. DIAZEPAM [Concomitant]
     Dosage: 5 MG, TID
  3. LAMIVUDINE [Concomitant]
     Dosage: 300 MG, QD
  4. ATAZANAVIR [Suspect]
     Dosage: 300 MG, QD
  5. RITONAVIR [Suspect]
     Dosage: 100 MG, QD
  6. ABACAVIR [Suspect]
     Dosage: 600 MG, QD

REACTIONS (6)
  - DRUG INTERACTION [None]
  - OVERDOSE [None]
  - VENTRICULAR TACHYCARDIA [None]
  - ELECTROCARDIOGRAM QT PROLONGED [None]
  - SYNCOPE [None]
  - HYPOKALAEMIA [None]
